FAERS Safety Report 15596838 (Version 1)
Quarter: 2018Q4

REPORT INFORMATION
  Report Type: Spontaneous
  Country: IT (occurrence: IT)
  Receive Date: 20181108
  Receipt Date: 20181108
  Transmission Date: 20190205
  Serious: Yes (Other)
  Sender: FDA-Public Use
  Company Number: IT-AMGEN-ITASP2018155227

PATIENT
  Age: 68 Year
  Weight: 85 kg

DRUGS (1)
  1. XGEVA [Suspect]
     Active Substance: DENOSUMAB
     Indication: PROPHYLAXIS
     Dosage: 120 MG, CYCLICAL
     Route: 058
     Dates: start: 20150301, end: 20170501

REACTIONS (2)
  - Osteonecrosis of jaw [Unknown]
  - Sinusitis [Unknown]

NARRATIVE: CASE EVENT DATE: 20170601
